FAERS Safety Report 9449802 (Version 1)
Quarter: 2013Q3

REPORT INFORMATION
  Report Type: Spontaneous
  Country: DE (occurrence: DE)
  Receive Date: 20130809
  Receipt Date: 20130809
  Transmission Date: 20140515
  Serious: Yes (Other)
  Sender: FDA-Public Use
  Company Number: DE-JNJFOC-20130803069

PATIENT
  Sex: Female

DRUGS (1)
  1. XARELTO [Suspect]
     Indication: CEREBROVASCULAR ACCIDENT PROPHYLAXIS
     Route: 048

REACTIONS (6)
  - Dyspnoea [Unknown]
  - Angina pectoris [Unknown]
  - Dizziness [Unknown]
  - Asthenia [Unknown]
  - Heart rate increased [Unknown]
  - Pruritus [Unknown]
